FAERS Safety Report 4569216-8 (Version None)
Quarter: 2005Q1

REPORT INFORMATION
  Report Type: 
  Country: None (occurrence: None)
  Receive Date: 20050203
  Receipt Date: 20050126
  Transmission Date: 20050727
  Serious: Yes (Hospitalization)
  Sender: FDA-Public Use
  Company Number: DE-SANOFI-SYNTHELABO-F04200500022

PATIENT
  Sex: Male

DRUGS (4)
  1. CAPECITABIN [Suspect]
     Indication: RECTAL CANCER
     Dosage: 2000 MG/M2
     Route: 048
     Dates: start: 20050124, end: 20050124
  2. ELOXATIN [Suspect]
     Indication: RECTAL CANCER
     Route: 041
     Dates: start: 20050124, end: 20050124
  3. HCT [Concomitant]
     Route: 048
  4. BELOC ZOK [Concomitant]
     Indication: HYPERTENSION
     Route: 048

REACTIONS (1)
  - RENAL FAILURE ACUTE [None]
